FAERS Safety Report 19017905 (Version 1)
Quarter: 2021Q1

REPORT INFORMATION
  Report Type: Spontaneous
  Country: US (occurrence: US)
  Receive Date: 20210316
  Receipt Date: 20210316
  Transmission Date: 20210420
  Serious: Yes (Other)
  Sender: FDA-Public Use
  Company Number: None

PATIENT
  Age: 36 Year
  Sex: Female

DRUGS (1)
  1. LEDIPASVIR/SOFOSBUVIR 90MG/400MG [Suspect]
     Active Substance: LEDIPASVIR\SOFOSBUVIR
     Indication: HEPATITIS C
     Route: 048
     Dates: start: 20210106

REACTIONS (3)
  - Abortion spontaneous [None]
  - Maternal drugs affecting foetus [None]
  - Maternal exposure timing unspecified [None]

NARRATIVE: CASE EVENT DATE: 20210315
